FAERS Safety Report 5169287-4 (Version None)
Quarter: 2006Q4

REPORT INFORMATION
  Report Type: 
  Country: None (occurrence: None)
  Receive Date: 20061127
  Receipt Date: 20061124
  Transmission Date: 20070319
  Serious: Yes (Death)
  Sender: FDA-Public Use
  Company Number: GXKR2006GB07648

PATIENT
  Age: 20 Year
  Sex: Male

DRUGS (2)
  1. CLOZAPINE [Suspect]
     Indication: SCHIZOPHRENIA
     Dosage: 900 MG, QD, UNKNOWN
  2. AMISULPRIDE (AMISULPRIDE) [Concomitant]

REACTIONS (6)
  - ABDOMINAL PAIN [None]
  - CIRCULATORY COLLAPSE [None]
  - CONSTIPATION [None]
  - FAECALOMA [None]
  - INTESTINAL INFARCTION [None]
  - INTESTINAL ISCHAEMIA [None]
